FAERS Safety Report 5711300-7 (Version None)
Quarter: 2008Q2

REPORT INFORMATION
  Report Type: 
  Country: None (occurrence: None)
  Receive Date: 20080418
  Receipt Date: 20080418
  Transmission Date: 20081010
  Serious: No
  Sender: FDA-Public Use
  Company Number: None

PATIENT
  Age: 51 Year
  Sex: Male
  Weight: 98.9 kg

DRUGS (1)
  1. PRAVASTATIN [Suspect]
     Indication: HYPERLIPIDAEMIA
     Dosage: 80 MG HS PO
     Route: 048
     Dates: start: 20080108, end: 20080308

REACTIONS (5)
  - ABDOMINAL DISCOMFORT [None]
  - NAUSEA [None]
  - PAIN IN EXTREMITY [None]
  - RHABDOMYOLYSIS [None]
  - VOMITING [None]
